FAERS Safety Report 4847626-9 (Version None)
Quarter: 2005Q4

REPORT INFORMATION
  Report Type: 
  Country: None (occurrence: None)
  Receive Date: 20051205
  Receipt Date: 20051121
  Transmission Date: 20060501
  Serious: Yes (Death)
  Sender: FDA-Public Use
  Company Number: 2005157934

PATIENT
  Age: 74 Year
  Sex: Male

DRUGS (2)
  1. METHYLPREDNISOLONE [Suspect]
     Indication: IDIOPATHIC THROMBOCYTOPENIC PURPURA
  2. CYCLOSOPRINE (CYCLOSPORIN) [Suspect]
     Indication: IDIOPATHIC THROMBOCYTOPENIC PURPURA

REACTIONS (11)
  - ANAL ULCER [None]
  - BLISTER [None]
  - CYTOMEGALOVIRUS VIRAEMIA [None]
  - GASTROINTESTINAL ULCER [None]
  - HERPES SIMPLEX [None]
  - INFLAMMATION [None]
  - ISCHAEMIA [None]
  - MULTI-ORGAN FAILURE [None]
  - PAIN [None]
  - SKIN DEGENERATIVE DISORDER [None]
  - THERAPY NON-RESPONDER [None]
